FAERS Safety Report 8099001-4 (Version None)
Quarter: 2012Q1

REPORT INFORMATION
  Report Type: 
  Country: None (occurrence: None)
  Receive Date: 20120129
  Receipt Date: 20111021
  Transmission Date: 20120608
  Serious: Yes (Other)
  Sender: FDA-Public Use
  Company Number: US-ABBOTT-11P-163-0867920-00

PATIENT
  Age: 49 Year
  Sex: Male

DRUGS (7)
  1. HUMIRA [Suspect]
     Indication: CROHN'S DISEASE
     Dates: start: 20110825
  2. PRILOSEC [Concomitant]
     Indication: PRODUCT USED FOR UNKNOWN INDICATION
     Dosage: AT BEDTIME
  3. DEXILANT [Concomitant]
     Indication: BARRETT'S OESOPHAGUS
     Dosage: IN THE MORNING
  4. COLESTIPOL HYDROCHLORIDE [Concomitant]
     Indication: PRODUCT USED FOR UNKNOWN INDICATION
  5. PENTASA [Concomitant]
     Indication: PRODUCT USED FOR UNKNOWN INDICATION
  6. ELAVIL [Concomitant]
     Indication: INSOMNIA
     Dosage: AT BEDTIME
  7. BUSPIRONE HCL [Concomitant]
     Indication: ANXIETY

REACTIONS (1)
  - DRUG INEFFECTIVE [None]
